FAERS Safety Report 13905224 (Version 1)
Quarter: 2017Q3

REPORT INFORMATION
  Report Type: Spontaneous
  Country: US (occurrence: None)
  Receive Date: 20170824
  Receipt Date: 20170824
  Transmission Date: 20171127
  Serious: Yes (Death)
  Sender: FDA-Public Use
  Company Number: None

PATIENT
  Age: 75 Year
  Sex: Male

DRUGS (24)
  1. SIROLIMUS 0.5MG [Suspect]
     Active Substance: SIROLIMUS
     Indication: LIVER TRANSPLANT
     Route: 048
     Dates: start: 20150729, end: 20170817
  2. MYFORTIC [Suspect]
     Active Substance: MYCOPHENOLATE SODIUM
     Indication: LIVER TRANSPLANT
     Route: 048
     Dates: start: 20160413, end: 20170817
  3. MAGNESIUM-OX [Concomitant]
  4. BUMETANIDE. [Concomitant]
     Active Substance: BUMETANIDE
  5. OMEPRAZOLE. [Concomitant]
     Active Substance: OMEPRAZOLE
  6. LANTUS [Concomitant]
     Active Substance: INSULIN GLARGINE
  7. WAL-DRYL [Concomitant]
     Active Substance: DIPHENHYDRAMINE HYDROCHLORIDE
  8. VITAMIN C [Concomitant]
     Active Substance: ASCORBIC ACID
  9. SIROLIMUS 0.5MG [Suspect]
     Active Substance: SIROLIMUS
     Indication: RENAL TRANSPLANT
     Route: 048
     Dates: start: 20150729, end: 20170817
  10. MYFORTIC [Suspect]
     Active Substance: MYCOPHENOLATE SODIUM
     Indication: RENAL TRANSPLANT
     Route: 048
     Dates: start: 20160413, end: 20170817
  11. GLIPIZIDE. [Concomitant]
     Active Substance: GLIPIZIDE
  12. AMLODIPINE [Concomitant]
     Active Substance: AMLODIPINE BESYLATE
  13. ATORVASTATIN [Concomitant]
     Active Substance: ATORVASTATIN
  14. ASPIRIN-81 [Concomitant]
  15. METOLAZONE. [Concomitant]
     Active Substance: METOLAZONE
  16. SPIRONOLACT [Concomitant]
     Active Substance: SPIRONOLACTONE
  17. FERROUS SULF [Concomitant]
     Active Substance: FERROUS SULFATE
  18. HUMALOG [Concomitant]
     Active Substance: INSULIN LISPRO
  19. MULTI-VITAMIN [Concomitant]
     Active Substance: .ALPHA.-TOCOPHEROL ACETATE, DL-\ASCORBIC ACID\CYANOCOBALAMIN\FLUORIDE ION\FOLIC ACID\NIACIN\PYRIDOXINE\RIBOFLAVIN\THIAMINE\VITAMIN A\VITAMIN D
  20. LACTULOSE. [Concomitant]
     Active Substance: LACTULOSE
  21. CARVEDILOL. [Concomitant]
     Active Substance: CARVEDILOL
  22. VITAMIN D [Concomitant]
     Active Substance: CHOLECALCIFEROL
  23. ALLOPURINOL. [Concomitant]
     Active Substance: ALLOPURINOL
  24. PRAVASTATIN. [Concomitant]
     Active Substance: PRAVASTATIN

REACTIONS (1)
  - Death [None]

NARRATIVE: CASE EVENT DATE: 20170817
